FAERS Safety Report 7402784-7 (Version None)
Quarter: 2011Q2

REPORT INFORMATION
  Report Type: 
  Country: None (occurrence: None)
  Receive Date: 20110408
  Receipt Date: 20110331
  Transmission Date: 20111010
  Serious: Yes (Disabling)
  Sender: FDA-Public Use
  Company Number: JP-ALLERGAN-1104752US

PATIENT
  Age: 73 Year
  Sex: Female
  Weight: 60 kg

DRUGS (10)
  1. BOTOX [Suspect]
     Dosage: 100 UNITS, SINGLE
     Route: 030
     Dates: start: 20091110, end: 20091110
  2. ASPIRIN [Concomitant]
     Indication: ANGINA PECTORIS
     Dosage: 100 MG, QD
     Route: 048
  3. BOTOX [Suspect]
     Indication: TORTICOLLIS
     Dosage: 60 UNITS, SINGLE
     Route: 030
     Dates: start: 20090811, end: 20090811
  4. BOTOX [Suspect]
     Dosage: 150 UNITS, SINGLE
     Route: 030
     Dates: start: 20100202, end: 20100202
  5. BLOPRESS [Concomitant]
     Indication: HYPERTENSION
     Dosage: 8 MG, QD
     Route: 048
  6. DEPAS [Concomitant]
     Indication: TUMOUR EXCISION
     Dosage: 0.5 MG, QD
     Route: 048
  7. NORVASC [Concomitant]
     Indication: HYPERTENSION
     Dosage: 5 MG, QD
     Route: 048
  8. BOTOX [Suspect]
     Dosage: 150 UNITS, SINGLE
     Route: 030
     Dates: start: 20100810, end: 20100810
  9. WARFARIN SODIUM [Concomitant]
     Indication: ATRIAL FIBRILLATION
     Dosage: 1 MG, QD
     Route: 048
  10. BOTOX [Suspect]
     Dosage: 150 UNITS, SINGLE
     Route: 030
     Dates: start: 20100511, end: 20100511

REACTIONS (2)
  - HYPERTONIA [None]
  - MUSCULOSKELETAL PAIN [None]
